FAERS Safety Report 18968042 (Version 1)
Quarter: 2021Q1

REPORT INFORMATION
  Report Type: Spontaneous
  Country: US (occurrence: US)
  Receive Date: 20210303
  Receipt Date: 20210303
  Transmission Date: 20210420
  Serious: Yes (Death)
  Sender: FDA-Public Use
  Company Number: None

PATIENT
  Age: 91 Year
  Sex: Female
  Weight: 40.82 kg

DRUGS (2)
  1. AZITHROMYCIN 500 MG [Suspect]
     Active Substance: AZITHROMYCIN ANHYDROUS
     Indication: COVID-19
     Route: 041
     Dates: start: 20200720, end: 20200721
  2. CEFTRIAXONE 1 GM [Suspect]
     Active Substance: CEFTRIAXONE
     Indication: COVID-19
     Dosage: ?          OTHER DOSE:1 GM;?
     Route: 041
     Dates: start: 20200720, end: 20200721

REACTIONS (1)
  - Death [None]

NARRATIVE: CASE EVENT DATE: 20200721
